FAERS Safety Report 9425018 (Version 2)
Quarter: 2013Q3

REPORT INFORMATION
  Report Type: Spontaneous
  Country: US (occurrence: US)
  Receive Date: 20130729
  Receipt Date: 20130812
  Transmission Date: 20140515
  Serious: Yes (Hospitalization)
  Sender: FDA-Public Use
  Company Number: US-B.I. PHARMACEUTICALS,INC./RIDGEFIELD-2013-BI-21675BP

PATIENT
  Age: 81 Year
  Sex: Female
  Weight: 88 kg

DRUGS (4)
  1. TRADJENTA [Suspect]
     Indication: DIABETES MELLITUS
     Dosage: 5 MG
     Route: 048
     Dates: start: 20130626
  2. MEFORMIN [Concomitant]
  3. HEART MEDICATION [Concomitant]
  4. SUPPLEMENTS [Concomitant]

REACTIONS (2)
  - Cerebrovascular accident [Recovered/Resolved with Sequelae]
  - Diarrhoea [Not Recovered/Not Resolved]
